FAERS Safety Report 14636601 (Version 1)
Quarter: 2018Q1

REPORT INFORMATION
  Report Type: Spontaneous
  Country: US (occurrence: US)
  Receive Date: 20180313
  Receipt Date: 20180313
  Transmission Date: 20180509
  Serious: Yes (Hospitalization)
  Sender: FDA-Public Use
  Company Number: None

PATIENT
  Sex: Female

DRUGS (11)
  1. PROPRANOLOL [Concomitant]
     Active Substance: PROPRANOLOL HYDROCHLORIDE
  2. TYLENOL [Concomitant]
     Active Substance: ACETAMINOPHEN
  3. VITAMIN D3 [Concomitant]
     Active Substance: CHOLECALCIFEROL
  4. BOTOX [Suspect]
     Active Substance: ONABOTULINUMTOXINA
     Indication: HEMIPLEGIA
     Dosage: ?          OTHER FREQUENCY:Q 12 WEEKS;?
     Route: 030
     Dates: start: 20131004
  5. LISINOPRIL. [Concomitant]
     Active Substance: LISINOPRIL
  6. TOPAMAX [Concomitant]
     Active Substance: TOPIRAMATE
  7. HUMULIN R [Concomitant]
     Active Substance: INSULIN HUMAN
  8. HYDRALAZINE [Concomitant]
     Active Substance: HYDRALAZINE HYDROCHLORIDE
  9. CARB/LEVO [Concomitant]
     Active Substance: CARBIDOPA\LEVODOPA
  10. HUMALOG [Concomitant]
     Active Substance: INSULIN LISPRO
  11. OMEPRAZOLE. [Concomitant]
     Active Substance: OMEPRAZOLE

REACTIONS (1)
  - Hospitalisation [None]
